FAERS Safety Report 20582206 (Version 1)
Quarter: 2022Q1

REPORT INFORMATION
  Report Type: Report from Study
  Country: IT (occurrence: IT)
  Receive Date: 20220311
  Receipt Date: 20220311
  Transmission Date: 20220424
  Serious: Yes (Hospitalization)
  Sender: FDA-Public Use
  Company Number: None

PATIENT
  Age: 15 Year
  Sex: Female

DRUGS (3)
  1. QUETIAPINE [Suspect]
     Active Substance: QUETIAPINE
     Indication: Suicide attempt
     Dosage: 11.2 GRAM, ABUSE / MISUSE
     Route: 065
     Dates: start: 20220123, end: 20220123
  2. LITHIUM CARBONATE [Suspect]
     Active Substance: LITHIUM CARBONATE
     Indication: Suicide attempt
     Dosage: 50 DF, ABUSE / MISUSE, CARBOLITHIUM 300 MG HARD CAPSULES
     Route: 065
     Dates: start: 20220123, end: 20220123
  3. ALPRAZOLAM [Suspect]
     Active Substance: ALPRAZOLAM
     Indication: Suicide attempt
     Dosage: 10 MG, ABUSE / MISUSE
     Route: 065
     Dates: start: 20220123, end: 20220123

REACTIONS (3)
  - Sopor [Not Recovered/Not Resolved]
  - Vomiting [Not Recovered/Not Resolved]
  - Agitation [Not Recovered/Not Resolved]

NARRATIVE: CASE EVENT DATE: 20220124
